FAERS Safety Report 5614634-X (Version None)
Quarter: 2008Q1

REPORT INFORMATION
  Report Type: 
  Country: None (occurrence: None)
  Receive Date: 20080131
  Receipt Date: 20080123
  Transmission Date: 20080703
  Serious: Yes (Other)
  Sender: FDA-Public Use
  Company Number: 2008US000324

PATIENT
  Age: 75 Year
  Sex: Male

DRUGS (1)
  1. PROTOPIC [Suspect]
     Indication: ECZEMA
     Dosage: 0.1 %, BID, TOPICAL
     Route: 061
     Dates: start: 20040129

REACTIONS (1)
  - GALLBLADDER CANCER [None]
